FAERS Safety Report 10652370 (Version 1)
Quarter: 2014Q4

REPORT INFORMATION
  Report Type: Spontaneous
  Country: US (occurrence: None)
  Receive Date: 20141212
  Receipt Date: 20141212
  Transmission Date: 20150529
  Serious: Yes (Other)
  Sender: FDA-Public Use
  Company Number: None

PATIENT
  Age: 73 Year
  Sex: Female
  Weight: 72.58 kg

DRUGS (13)
  1. VITAMIN D [Concomitant]
     Active Substance: CHOLECALCIFEROL
  2. CRANBERRY TABLET [Concomitant]
  3. ACID [Concomitant]
     Active Substance: UNSPECIFIED INGREDIENT
  4. RECLAST [Suspect]
     Active Substance: ZOLEDRONIC ACID
     Indication: OSTEOPOROSIS
     Dosage: ONVE IV BOTTLE ONE/YR IV/DONE AT HOSPITAL.
     Route: 042
     Dates: start: 20141121, end: 20141122
  5. SYNTHROID [Concomitant]
     Active Substance: LEVOTHYROXINE SODIUM
  6. GLUCOSAMINE WITH CHRONDROTIN [Concomitant]
  7. RED YEAST RICE [Concomitant]
     Active Substance: DIETARY SUPPLEMENT
  8. MULTIVITAMIN [Concomitant]
     Active Substance: VITAMINS
  9. ZSORB POWDER QD [Concomitant]
  10. OXYBUTURIN [Concomitant]
  11. METROPROLOL [Concomitant]
     Active Substance: METOPROLOL
  12. CALCIUM WITH VITAMIN D [Concomitant]
     Active Substance: CALCIUM\VITAMIN D
  13. ELIDEL [Concomitant]
     Active Substance: PIMECROLIMUS

REACTIONS (20)
  - Nausea [None]
  - Arthralgia [None]
  - Dysgeusia [None]
  - Chest pain [None]
  - Muscle spasms [None]
  - Bone pain [None]
  - Insomnia [None]
  - Chest discomfort [None]
  - Asthenia [None]
  - Back pain [None]
  - Headache [None]
  - Chills [None]
  - Pyrexia [None]
  - Dizziness [None]
  - Vomiting [None]
  - Decreased appetite [None]
  - Neck pain [None]
  - Vision blurred [None]
  - Malaise [None]
  - Dyspnoea [None]

NARRATIVE: CASE EVENT DATE: 20141121
